FAERS Safety Report 15847250 (Version 2)
Quarter: 2019Q1

REPORT INFORMATION
  Report Type: Spontaneous
  Country: FI (occurrence: FI)
  Receive Date: 20190121
  Receipt Date: 20190202
  Transmission Date: 20190417
  Serious: Yes (Other)
  Sender: FDA-Public Use
  Company Number: FI-AUROBINDO-AUR-APL-2019-001151

PATIENT

DRUGS (4)
  1. OLANZAPINE. [Suspect]
     Active Substance: OLANZAPINE
     Indication: PRODUCT USED FOR UNKNOWN INDICATION
     Dosage: 30 MILLIGRAM
     Route: 048
  2. OLANZAPINE. [Suspect]
     Active Substance: OLANZAPINE
     Dosage: UNK
     Route: 048
     Dates: start: 20180418
  3. ZYPADHERA [Suspect]
     Active Substance: OLANZAPINE PAMOATE
     Indication: PRODUCT USED FOR UNKNOWN INDICATION
     Dosage: 300 MG, UNKNOWN
     Route: 030
     Dates: start: 20181107
  4. VENLAFAXINE [Concomitant]
     Active Substance: VENLAFAXINE HYDROCHLORIDE
     Indication: MAJOR DEPRESSION
     Dosage: 150 MILLIGRAM
     Route: 065

REACTIONS (13)
  - Blood pressure increased [Unknown]
  - Poverty of speech [Unknown]
  - Panic reaction [Unknown]
  - Headache [Unknown]
  - Tremor [Unknown]
  - Injection site abscess [Unknown]
  - Post-injection delirium sedation syndrome [Unknown]
  - Decreased appetite [Unknown]
  - Syncope [Unknown]
  - Anxiety [Unknown]
  - Overdose [Unknown]
  - Disorientation [Unknown]
  - Nausea [Unknown]

NARRATIVE: CASE EVENT DATE: 20181121
